FAERS Safety Report 5657831-X (Version None)
Quarter: 2008Q1

REPORT INFORMATION
  Report Type: 
  Country: None (occurrence: None)
  Receive Date: 20080310
  Receipt Date: 20071210
  Transmission Date: 20080703
  Serious: No
  Sender: FDA-Public Use
  Company Number: US-ASTRAZENECA-2007UW28153

PATIENT
  Sex: Female

DRUGS (2)
  1. ZESTRIL [Suspect]
     Route: 048
     Dates: start: 20071101
  2. ALEVE [Suspect]

REACTIONS (1)
  - BLOOD PRESSURE INCREASED [None]
